FAERS Safety Report 5371990-8 (Version None)
Quarter: 2007Q2

REPORT INFORMATION
  Report Type: 
  Country: None (occurrence: None)
  Receive Date: 20070627
  Receipt Date: 20070620
  Transmission Date: 20071010
  Serious: Yes (Hospitalization)
  Sender: FDA-Public Use
  Company Number: CA-ASTRAZENECA-2007UW14987

PATIENT
  Age: 59 Year
  Sex: Male

DRUGS (4)
  1. CRESTOR [Suspect]
     Indication: HYPERCHOLESTEROLAEMIA
     Route: 048
     Dates: start: 20061211
  2. PLAVIX [Concomitant]
     Route: 048
  3. ASPIRIN [Concomitant]
     Route: 048
  4. TYLENOL W/ CODEINE NO. 3 [Concomitant]
     Indication: PAIN
     Route: 048
     Dates: start: 20061201

REACTIONS (12)
  - AFFECTIVE DISORDER [None]
  - ARTHRALGIA [None]
  - CONSTIPATION [None]
  - CONTUSION [None]
  - DYSPHAGIA [None]
  - FACE OEDEMA [None]
  - HEADACHE [None]
  - INFECTION [None]
  - OEDEMA PERIPHERAL [None]
  - RASH [None]
  - SCAB [None]
  - URTICARIA [None]
